FAERS Safety Report 20126920 (Version 2)
Quarter: 2022Q1

REPORT INFORMATION
  Report Type: Report from Study
  Country: CA (occurrence: CA)
  Receive Date: 20211129
  Receipt Date: 20220205
  Transmission Date: 20220423
  Serious: Yes (Death)
  Sender: FDA-Public Use
  Company Number: CA-HLS-202108835

PATIENT
  Age: 41 Year
  Sex: Male

DRUGS (1)
  1. CLOZARIL [Suspect]
     Active Substance: CLOZAPINE
     Indication: Product used for unknown indication
     Route: 048
     Dates: end: 20200420

REACTIONS (4)
  - Death [Fatal]
  - Delusion of reference [Fatal]
  - Thermal burn [Fatal]
  - Completed suicide [Fatal]

NARRATIVE: CASE EVENT DATE: 20211117
